FAERS Safety Report 25438991 (Version 1)
Quarter: 2025Q2

REPORT INFORMATION
  Report Type: Spontaneous
  Country: US (occurrence: None)
  Receive Date: 20250614
  Receipt Date: 20250614
  Transmission Date: 20250716
  Serious: Yes (Hospitalization, Disabling)
  Sender: FDA-CTU
  Company Number: None

PATIENT
  Age: 68 Year
  Sex: Female

DRUGS (4)
  1. CYMBALTA [Suspect]
     Active Substance: DULOXETINE HYDROCHLORIDE
     Indication: Depression
     Dates: start: 20100101, end: 20240315
  2. CYMBALTA [Suspect]
     Active Substance: DULOXETINE HYDROCHLORIDE
     Indication: Anxiety
  3. CYMBALTA [Suspect]
     Active Substance: DULOXETINE HYDROCHLORIDE
     Indication: Post-traumatic stress disorder
  4. CYMBALTA [Suspect]
     Active Substance: DULOXETINE HYDROCHLORIDE
     Indication: Fibromyalgia

REACTIONS (15)
  - Withdrawal syndrome [None]
  - Speech disorder [None]
  - Hypoaesthesia [None]
  - Pupillary disorder [None]
  - Night sweats [None]
  - Insomnia [None]
  - Agitation [None]
  - Dizziness [None]
  - Suicidal behaviour [None]
  - Electric shock sensation [None]
  - Migraine [None]
  - Tremor [None]
  - Hallucination [None]
  - Balance disorder [None]
  - Gastrointestinal disorder [None]
